FAERS Safety Report 8507832-9 (Version None)
Quarter: 2012Q3

REPORT INFORMATION
  Report Type: 
  Country: None (occurrence: None)
  Receive Date: 20120709
  Receipt Date: 20120709
  Transmission Date: 20120928
  Serious: Yes (Life-Threatening, Hospitalization)
  Sender: FDA-Public Use
  Company Number: None

PATIENT
  Age: 60 Year
  Sex: Female
  Weight: 55.3388 kg

DRUGS (1)
  1. ALENDRONATE SODIUM [Suspect]
     Indication: OSTEOPENIA
     Dosage: 35 MG, 1/WEEK, PO
     Route: 048
     Dates: start: 20080708, end: 20110627

REACTIONS (4)
  - VASCULAR GRAFT [None]
  - ARTERIOSCLEROSIS [None]
  - CHEST PAIN [None]
  - DISTURBANCE IN ATTENTION [None]
